FAERS Safety Report 7135500-7 (Version None)
Quarter: 2010Q4

REPORT INFORMATION
  Report Type: 
  Country: None (occurrence: None)
  Receive Date: 20101203
  Receipt Date: 20101125
  Transmission Date: 20110411
  Serious: Yes (Other)
  Sender: FDA-Public Use
  Company Number: BR-ABBOTT-10P-020-0624374-00

PATIENT
  Sex: Female
  Weight: 90 kg

DRUGS (17)
  1. HUMIRA [Suspect]
     Indication: RHEUMATOID ARTHRITIS
     Route: 058
     Dates: start: 20090930, end: 20100901
  2. METOPROLOL SUCCINATE [Concomitant]
     Indication: HYPERTENSION
     Route: 048
     Dates: start: 20090101
  3. METOPROLOL SUCCINATE [Concomitant]
     Indication: CARDIOVASCULAR DISORDER
  4. RANITIDINE HYDROCHLORIDE [Concomitant]
     Indication: HYPERTENSION
     Route: 048
     Dates: start: 20060101
  5. CLONAZEPAM [Concomitant]
     Indication: INSOMNIA
     Route: 048
     Dates: start: 20000101
  6. CITALOPRAM HYDROBROMIDE [Concomitant]
     Indication: DEPRESSION
     Route: 048
     Dates: start: 20050101
  7. PANTOPRAZOLE [Concomitant]
     Indication: GASTRIC DISORDER
     Route: 048
     Dates: start: 20010101
  8. RANITIDINE [Concomitant]
     Indication: PAIN
     Route: 048
  9. KETOPROFEN 150MG/RANITIDINE150MG/DIACEREIN 50MG [Concomitant]
     Indication: PAIN
     Route: 048
  10. KETOPROFEN 150MG/RANITIDINE150MG/DIACEREIN 50MG [Concomitant]
     Indication: RHEUMATOID ARTHRITIS
  11. KETOPROFEN 150MG/RANITIDINE 150MG/CYCLOBENZAPRINE 10MG/PAROXETINE [Concomitant]
     Indication: RHEUMATOID ARTHRITIS
     Route: 048
  12. KETOPROFEN 150MG/RANITIDINE 150MG/CYCLOBENZAPRINE 10MG/PAROXETINE [Concomitant]
     Indication: PAIN
  13. UNKNOWN [Concomitant]
     Indication: RHEUMATOID ARTHRITIS
     Route: 048
  14. UNKNOWN [Concomitant]
     Indication: PAIN
  15. EMABAL [Concomitant]
     Indication: HYPERTENSION
     Route: 048
     Dates: start: 20070101
  16. DEFLAZACORT/RANITIDINE/HYDROCHLOROTHIAZIDE/FOLIC ACID [Concomitant]
     Indication: RHEUMATOID ARTHRITIS
     Dosage: 9MG/150MG/50MG/2MG EVERY 24 HOURS
     Route: 048
     Dates: start: 20060101
  17. PAROXETINE/CYCLOBENZAPRINE/AMITRIPTYLINE/DEFLAZACORT/RANITIDINE [Concomitant]
     Indication: RHEUMATOID ARTHRITIS
     Dosage: PAROXETINE30MG/CYCLOBENZAPRINE 10MG/ AMITRIPTYLINE 10MG/ DEFLAZACORT/RANITIDINE
     Route: 048
     Dates: start: 20060101

REACTIONS (9)
  - ARTHRALGIA [None]
  - CYST [None]
  - DRUG INEFFECTIVE [None]
  - MASS [None]
  - MUSCULOSKELETAL PAIN [None]
  - PAIN [None]
  - RHEUMATOID FACTOR INCREASED [None]
  - SENSORY DISTURBANCE [None]
  - TENDONITIS [None]
